FAERS Safety Report 7084241 (Version 1)
Quarter: 2020Q3

REPORT INFORMATION
  Report Type: Spontaneous
  Country: JP (occurrence: JP)
  Receive Date: 20090818
  Receipt Date: 20090818
  Transmission Date: 20201104
  Serious: Yes (Other)
  Sender: FDA-Public Use
  Company Number: JP-ASTRAZENECA-2009SE07493

PATIENT
  Age: 39 Year
  Sex: Female

DRUGS (3)
  1. MAGMITT [Concomitant]
     Indication: CONSTIPATION PROPHYLAXIS
     Dosage: NUMBER OF SEPARATE DOSAGES UNKNOWN
     Route: 048
     Dates: start: 20090701, end: 20090714
  2. FLUOROURACIL\LEUCOVORIN CALCIUM\OXALIPLATIN [Suspect]
     Active Substance: FLUOROURACIL\LEUCOVORIN CALCIUM\OXALIPLATIN
     Route: 042
     Dates: start: 20081114
  3. CEDIRANIB. [Suspect]
     Active Substance: CEDIRANIB
     Indication: RECTAL CANCER
     Route: 048
     Dates: start: 20081114, end: 20090522

REACTIONS (2)
  - Abortion missed [Recovered/Resolved]
  - Paternal drugs affecting foetus [Unknown]

NARRATIVE: CASE EVENT DATE: 20090523
